FAERS Safety Report 4817717-7 (Version None)
Quarter: 2005Q3

REPORT INFORMATION
  Report Type: 
  Country: None (occurrence: None)
  Receive Date: 20050929
  Receipt Date: 20050805
  Transmission Date: 20060218
  Serious: No
  Sender: FDA-Public Use
  Company Number: 05P-163-0307598-00

PATIENT
  Age: 47 Year
  Sex: Female
  Weight: 100 kg

DRUGS (8)
  1. HUMIRA [Suspect]
     Indication: RHEUMATOID ARTHRITIS
     Dosage: 40 MG, 1 IN 2 WK, PER ORAL
     Route: 048
     Dates: start: 20050708
  2. METHOTREXATE [Concomitant]
  3. FUROSEMIDE [Concomitant]
  4. CELECOXIB [Concomitant]
  5. VICODIN [Concomitant]
  6. TRAZODONE HCL [Concomitant]
  7. FOLIC ACID [Concomitant]
  8. CALCIUM GLUCONATE [Concomitant]

REACTIONS (1)
  - PHARYNGOLARYNGEAL PAIN [None]
